FAERS Safety Report 8521832-4 (Version None)
Quarter: 2012Q3

REPORT INFORMATION
  Report Type: 
  Country: None (occurrence: None)
  Receive Date: 20120719
  Receipt Date: 20120418
  Transmission Date: 20120928
  Serious: No
  Sender: FDA-Public Use
  Company Number: US-BRISTOL-MYERS SQUIBB COMPANY-16534349

PATIENT
  Age: 42 Year
  Sex: Female

DRUGS (1)
  1. YERVOY [Suspect]
     Dosage: NO OF INF 2
     Dates: start: 20120320

REACTIONS (1)
  - HAEMATURIA [None]
